FAERS Safety Report 5086121-1 (Version None)
Quarter: 2006Q3

REPORT INFORMATION
  Report Type: 
  Country: None (occurrence: None)
  Receive Date: 20060817
  Receipt Date: 20060811
  Transmission Date: 20061208
  Serious: Yes (Hospitalization)
  Sender: FDA-Public Use
  Company Number: HQWYE361911AUG06

PATIENT
  Age: 70 Year
  Sex: Male

DRUGS (9)
  1. CEFIXIME CHEWABLE [Suspect]
     Dosage: 400 MG 1X PER 1 DAY ORAL
     Route: 048
     Dates: start: 20060608, end: 20060615
  2. GENTAMICIN SULFATE [Suspect]
     Dosage: 160 MG 1X PER 1 DAY IM
     Route: 030
     Dates: start: 20060610, end: 20060617
  3. LEVOFLOXACIN [Suspect]
     Dosage: 500 MG 1X PER 1 DAY ORAL
     Route: 048
     Dates: start: 20060608, end: 20060617
  4. LISINOPRIL [Concomitant]
  5. AMLODIPINE BESYLATE [Concomitant]
  6. BISOPROLOL FUMARATE AND HYDROCHLOROTHIAZIDE [Concomitant]
  7. FENOFIBRATE [Concomitant]
  8. TERAZOSIN HCL [Concomitant]
  9. ASPIRIN [Concomitant]

REACTIONS (2)
  - RENAL FAILURE ACUTE [None]
  - TENDONITIS [None]
